FAERS Safety Report 8307619 (Version 3)
Quarter: 2012Q4

REPORT INFORMATION
  Report Type: Report from Study
  Country: JP (occurrence: JP)
  Receive Date: 20111222
  Receipt Date: 20121101
  Transmission Date: 20130627
  Serious: Yes (Death, Hospitalization, Other)
  Sender: FDA-Public Use
  Company Number: JP-GENZYME-THYM-1003003

PATIENT
  Age: 15 Year
  Sex: Female
  Weight: 54 kg

DRUGS (9)
  1. THYMOGLOBULIN [Suspect]
     Indication: BONE MARROW CONDITIONING REGIMEN
     Dosage: 132.5 mg, qd
     Route: 065
     Dates: start: 20110730, end: 20110802
  2. FLUDARA [Suspect]
     Indication: APLASTIC ANAEMIA
     Dosage: 44 mg, qd (4 times)
     Route: 042
     Dates: start: 20110730, end: 20110802
  3. CYCLOPHOSPHAMIDE [Suspect]
     Indication: APLASTIC ANAEMIA
     Dosage: UNK
     Route: 065
     Dates: start: 20110730, end: 20110802
  4. CYCLOPHOSPHAMIDE [Suspect]
     Indication: BONE MARROW CONDITIONING REGIMEN
  5. DALTEPARIN SODIUM [Concomitant]
     Indication: PRODUCT USED FOR UNKNOWN INDICATION
     Dosage: UNK
     Route: 065
  6. ONDANSETRON [Concomitant]
     Indication: PRODUCT USED FOR UNKNOWN INDICATION
     Dosage: UNK
     Route: 065
  7. MESNA [Concomitant]
     Indication: PRODUCT USED FOR UNKNOWN INDICATION
     Dosage: UNK
     Route: 065
  8. METHYLPREDNISOLONE SODIUM SUCCINATE [Concomitant]
     Indication: PRODUCT USED FOR UNKNOWN INDICATION
     Dosage: UNK
     Route: 065
  9. ACICLOVIR [Concomitant]
     Indication: PRODUCT USED FOR UNKNOWN INDICATION
     Dosage: UNK
     Route: 065

REACTIONS (5)
  - Bacterial sepsis [Fatal]
  - Staphylococcal sepsis [Fatal]
  - Enterococcal sepsis [Fatal]
  - Candida sepsis [Fatal]
  - Cardiac failure [Fatal]
